FAERS Safety Report 25817539 (Version 1)
Quarter: 2025Q3

REPORT INFORMATION
  Report Type: Spontaneous
  Country: CN (occurrence: CN)
  Receive Date: 20250918
  Receipt Date: 20250918
  Transmission Date: 20251021
  Serious: Yes (Other)
  Sender: Onesource Specialty Pharma
  Company Number: CN-STRIDES ARCOLAB LIMITED-2025OS000707

PATIENT
  Age: 12 Year
  Sex: Female
  Weight: 22.2 kg

DRUGS (14)
  1. MYCOPHENOLATE MOFETIL [Suspect]
     Active Substance: MYCOPHENOLATE MOFETIL
     Indication: Chronic graft versus host disease
     Route: 065
  2. METHYLPREDNISOLONE [Suspect]
     Active Substance: METHYLPREDNISOLONE
     Indication: Chronic graft versus host disease
     Route: 065
     Dates: end: 20240104
  3. RUXOLITINIB [Suspect]
     Active Substance: RUXOLITINIB
     Indication: Chronic graft versus host disease
     Route: 065
  4. RUXOLITINIB [Suspect]
     Active Substance: RUXOLITINIB
     Route: 065
     Dates: start: 20240120
  5. TACROLIMUS [Suspect]
     Active Substance: TACROLIMUS
     Indication: Chronic graft versus host disease
     Route: 065
  6. TACROLIMUS [Suspect]
     Active Substance: TACROLIMUS
     Route: 065
     Dates: start: 20240120
  7. TACROLIMUS [Suspect]
     Active Substance: TACROLIMUS
     Route: 065
  8. RITUXIMAB [Suspect]
     Active Substance: RITUXIMAB
     Indication: Chronic graft versus host disease
     Route: 065
     Dates: end: 20240104
  9. CYCLOPHOSPHAMIDE [Suspect]
     Active Substance: CYCLOPHOSPHAMIDE
     Indication: Prophylaxis against graft versus host disease
     Route: 065
  10. CYCLOPHOSPHAMIDE [Suspect]
     Active Substance: CYCLOPHOSPHAMIDE
     Indication: Chronic graft versus host disease
  11. IMATINIB [Suspect]
     Active Substance: IMATINIB
     Indication: Chronic graft versus host disease
     Route: 065
     Dates: end: 20240104
  12. IMATINIB [Suspect]
     Active Substance: IMATINIB
     Route: 065
  13. METHOTREXATE [Concomitant]
     Active Substance: METHOTREXATE
     Indication: Prophylaxis against graft versus host disease
     Route: 065
  14. Immunoglobulin [Concomitant]
     Indication: Prophylaxis against graft versus host disease
     Route: 042

REACTIONS (2)
  - Disease progression [Unknown]
  - Off label use [Unknown]
